FAERS Safety Report 5282830-X (Version None)
Quarter: 2007Q2

REPORT INFORMATION
  Report Type: 
  Country: None (occurrence: None)
  Receive Date: 20070402
  Receipt Date: 20070326
  Transmission Date: 20071010
  Serious: Yes (Other)
  Sender: FDA-Public Use
  Company Number: HQWYE848118JAN07

PATIENT
  Age: 39 Year
  Sex: Female
  Weight: 54.48 kg

DRUGS (2)
  1. EFFEXOR XR [Suspect]
     Indication: DEPRESSION
     Route: 048
  2. NEURONTIN [Concomitant]
     Dosage: UNKNOWN
     Route: 048

REACTIONS (5)
  - ANTIMITOCHONDRIAL ANTIBODY POSITIVE [None]
  - ANTINUCLEAR ANTIBODY INCREASED [None]
  - AUTOIMMUNE DISORDER [None]
  - LABORATORY TEST ABNORMAL [None]
  - OSTEOARTHRITIS [None]
